FAERS Safety Report 5253008-0 (Version None)
Quarter: 2007Q1

REPORT INFORMATION
  Report Type: 
  Country: None (occurrence: None)
  Receive Date: 20070301
  Receipt Date: 20070221
  Transmission Date: 20070707
  Serious: Yes (Life-Threatening)
  Sender: FDA-Public Use
  Company Number: JP-ROCHE-483920

PATIENT
  Age: 11 Year
  Sex: Male

DRUGS (2)
  1. TAMIFLU [Suspect]
     Route: 048
     Dates: start: 20070218, end: 20070219
  2. ANHIBA [Concomitant]
     Dosage: GENERIC REPORTED AS ACETAMINOPHEN. FORM REPORTED AS RECTAL SUPPOSITORY.
     Route: 054
     Dates: start: 20070218

REACTIONS (2)
  - ABNORMAL BEHAVIOUR [None]
  - HALLUCINATION [None]
